FAERS Safety Report 8814870 (Version 1)
Quarter: 2012Q4

REPORT INFORMATION
  Report Type: 
  Country: GB (occurrence: GB)
  Receive Date: 20120928
  Receipt Date: 20120928
  Transmission Date: 20130627
  Serious: Yes (Life-Threatening, Hospitalization, Other)
  Sender: FDA-Public Use
  Company Number: GB-ROCHE-1081664

PATIENT
  Sex: Male
  Weight: 6.98 kg

DRUGS (4)
  1. ACTILYSE [Suspect]
     Indication: ARTERIAL THROMBOSIS LIMB
     Dosage: 1 hour
     Route: 042
     Dates: start: 20120601, end: 20120601
  2. AUGMENTIN [Concomitant]
  3. HEPARIN [Concomitant]
  4. PHENYTOIN [Concomitant]

REACTIONS (3)
  - Cerebral haemorrhage [Recovered/Resolved with Sequelae]
  - Convulsion [Unknown]
  - Depressed level of consciousness [Unknown]
